FAERS Safety Report 17497036 (Version 1)
Quarter: 2020Q1

REPORT INFORMATION
  Report Type: Spontaneous
  Country: US (occurrence: US)
  Receive Date: 20200304
  Receipt Date: 20200304
  Transmission Date: 20200409
  Serious: No
  Sender: FDA-Public Use
  Company Number: US-BEH-2020113515

PATIENT
  Sex: Male

DRUGS (1)
  1. HIZENTRA [Suspect]
     Active Substance: HUMAN IMMUNOGLOBULIN G
     Indication: IMMUNODEFICIENCY COMMON VARIABLE
     Dosage: 3 GRAM, QW
     Route: 058

REACTIONS (5)
  - No adverse event [Unknown]
  - Fatigue [Recovered/Resolved]
  - Influenza [Recovered/Resolved]
  - Sinusitis [Recovered/Resolved]
  - Product dose omission [Unknown]
